FAERS Safety Report 9784614 (Version 1)
Quarter: 2013Q4

REPORT INFORMATION
  Report Type: Spontaneous
  Country: GB (occurrence: GB)
  Receive Date: 20131226
  Receipt Date: 20131226
  Transmission Date: 20140711
  Serious: Yes (Other)
  Sender: FDA-Public Use
  Company Number: GB-WATSON-2013-23305

PATIENT
  Age: 56 Year
  Sex: Female

DRUGS (4)
  1. CHLORPHENAMINE (UNKNOWN) [Suspect]
     Indication: FOOD INTERACTION
     Dosage: 4MG EVERY 4 - 6 HOURS
     Route: 048
     Dates: start: 20131129, end: 20131129
  2. FLUCLOXACILLIN [Concomitant]
     Indication: PRODUCT USED FOR UNKNOWN INDICATION
     Dosage: UNK
     Route: 065
  3. DALACIN C                          /00166001/ [Concomitant]
     Indication: PRODUCT USED FOR UNKNOWN INDICATION
     Dosage: UNK
     Route: 065
  4. PREDNISOLONE [Concomitant]
     Indication: FOOD INTERACTION
     Dosage: UNK
     Route: 065

REACTIONS (4)
  - Dyspnoea [Not Recovered/Not Resolved]
  - Wheezing [Not Recovered/Not Resolved]
  - Discomfort [Unknown]
  - Reaction to drug excipients [Unknown]
